FAERS Safety Report 5917619-9 (Version None)
Quarter: 2008Q4

REPORT INFORMATION
  Report Type: 
  Country: None (occurrence: None)
  Receive Date: 20081014
  Receipt Date: 20081009
  Transmission Date: 20090506
  Serious: Yes (Disabling)
  Sender: FDA-Public Use
  Company Number: US-MERCK-0704USA06442

PATIENT
  Age: 79 Year
  Sex: Female

DRUGS (16)
  1. FOSAMAX [Suspect]
     Indication: OSTEOPOROSIS
     Route: 048
     Dates: start: 20051005, end: 20071001
  2. AVAPRO [Concomitant]
     Route: 065
  3. PRINIVIL [Concomitant]
     Route: 048
  4. SYNTHROID [Concomitant]
     Route: 065
  5. ALBUTEROL [Concomitant]
     Route: 065
  6. THEOPHYLLINE [Concomitant]
     Route: 065
  7. BENADRYL [Concomitant]
     Route: 065
  8. DEMEROL [Concomitant]
     Route: 065
  9. TYLENOL (CAPLET) [Concomitant]
     Route: 048
  10. CALCIUM (UNSPECIFIED) [Concomitant]
     Route: 065
  11. COD LIVER OIL [Concomitant]
     Route: 065
  12. ATROVENT [Concomitant]
     Route: 065
  13. NEURONTIN [Concomitant]
     Route: 065
  14. ALDACTONE [Concomitant]
     Route: 065
  15. PHENERGAN (DIBROMPROPAMIDINE ISETHIONATE (+) PROMETHAZINE) [Concomitant]
     Route: 065
  16. FOSAMAX [Suspect]
     Route: 048
     Dates: start: 20071001

REACTIONS (8)
  - ARTHRALGIA [None]
  - BONE NEOPLASM [None]
  - DRUG INEFFECTIVE [None]
  - INAPPROPRIATE SCHEDULE OF DRUG ADMINISTRATION [None]
  - MUSCLE SPASMS [None]
  - NAUSEA [None]
  - OSTEOARTHRITIS [None]
  - VOMITING [None]
